FAERS Safety Report 18485706 (Version 2)
Quarter: 2020Q4

REPORT INFORMATION
  Report Type: Spontaneous
  Country: US (occurrence: US)
  Receive Date: 20201110
  Receipt Date: 20201124
  Transmission Date: 20210114
  Serious: Yes (Other)
  Sender: FDA-Public Use
  Company Number: US-NOVEN PHARMACEUTICALS, INC.-2020US006749

PATIENT
  Age: 56 Year
  Sex: Female
  Weight: 69.84 kg

DRUGS (7)
  1. LIPITOR [Concomitant]
     Active Substance: ATORVASTATIN CALCIUM
     Indication: BLOOD CHOLESTEROL ABNORMAL
     Dosage: 10 MG AT NIGHT, DAILY
  2. COMBIPATCH [Suspect]
     Active Substance: ESTRADIOL\NORETHINDRONE ACETATE
     Dosage: 0.05/0.25 MG/DAY, 1 TRANSDERMAL PATCH 3-4 TIMES PER WEEK
     Route: 062
     Dates: start: 201910, end: 201911
  3. TIZANIDINE. [Concomitant]
     Active Substance: TIZANIDINE
     Indication: MUSCLE SPASMS
     Dosage: 3 MG
  4. COMBIPATCH [Suspect]
     Active Substance: ESTRADIOL\NORETHINDRONE ACETATE
     Dosage: 0.05/0.25 MG/DAY, 1 TRANSDERMAL PATCH 3-4 TIMES PER WEEK
     Route: 062
     Dates: start: 201911, end: 2019
  5. COMBIPATCH [Suspect]
     Active Substance: ESTRADIOL\NORETHINDRONE ACETATE
     Indication: MENOPAUSAL SYMPTOMS
     Dosage: 0.05/0.14 MG/DAY, 1 TRANSDERMAL PATCH 3-4 TIMES PER WEEK
     Route: 062
     Dates: start: 201912
  6. ZOFRAN [Concomitant]
     Active Substance: ONDANSETRON HYDROCHLORIDE
     Indication: NAUSEA
     Dosage: UNK
  7. LORTAB [Concomitant]
     Active Substance: ACETAMINOPHEN\HYDROCODONE BITARTRATE
     Indication: BACK PAIN
     Dosage: 7.5 UNK

REACTIONS (13)
  - Breast discomfort [Unknown]
  - Osteopenia [Not Recovered/Not Resolved]
  - Hypothyroidism [Recovered/Resolved]
  - Blood oestrogen increased [Unknown]
  - Weight increased [Not Recovered/Not Resolved]
  - Osteoporosis [Not Recovered/Not Resolved]
  - Haematocrit abnormal [Not Recovered/Not Resolved]
  - Platelet count increased [Not Recovered/Not Resolved]
  - Haemoglobin decreased [Not Recovered/Not Resolved]
  - Blood iron decreased [Not Recovered/Not Resolved]
  - Breast tenderness [Recovered/Resolved]
  - Off label use [Not Recovered/Not Resolved]
  - Fatigue [Not Recovered/Not Resolved]

NARRATIVE: CASE EVENT DATE: 2019
